FAERS Safety Report 9745897 (Version 2)
Quarter: 2014Q1

REPORT INFORMATION
  Report Type: Report from Study
  Country: JP (occurrence: JP)
  Receive Date: 20131211
  Receipt Date: 20140305
  Transmission Date: 20141002
  Serious: Yes (Death)
  Sender: FDA-Public Use
  Company Number: JP-OTSUKA-JP-2013-15844

PATIENT
  Sex: Male
  Weight: 66.1 kg

DRUGS (2)
  1. SAMSCA [Suspect]
     Indication: FLUID RETENTION
     Dosage: 15 MG MILLIGRAM(S), QAM
     Route: 048
     Dates: start: 20130531, end: 20130712
  2. DOBUPUM [Concomitant]
     Indication: CARDIAC FAILURE
     Dosage: 100 ML MILLILITRE(S), DAILY DOSE
     Route: 041
     Dates: start: 20130527, end: 20130825

REACTIONS (1)
  - Cardiac failure chronic [Fatal]
